FAERS Safety Report 7100379-6 (Version None)
Quarter: 2010Q4

REPORT INFORMATION
  Report Type: 
  Country: None (occurrence: None)
  Receive Date: 20101112
  Receipt Date: 20101102
  Transmission Date: 20110411
  Serious: Yes (Other)
  Sender: FDA-Public Use
  Company Number: PHHY2010ZA72557

PATIENT
  Sex: Female

DRUGS (1)
  1. ACLASTA [Suspect]
     Indication: UPPER LIMB FRACTURE
     Dosage: UNK

REACTIONS (2)
  - FALL [None]
  - LOSS OF CONSCIOUSNESS [None]
